FAERS Safety Report 9717360 (Version 1)
Quarter: 2013Q4

REPORT INFORMATION
  Report Type: Spontaneous
  Country: US (occurrence: US)
  Receive Date: 20131127
  Receipt Date: 20131127
  Transmission Date: 20140711
  Serious: Yes (Hospitalization, Other)
  Sender: FDA-Public Use
  Company Number: US-GILEAD-2008-0019520

PATIENT
  Sex: Male

DRUGS (5)
  1. LETAIRIS [Suspect]
     Indication: PULMONARY ARTERIAL HYPERTENSION
     Route: 048
     Dates: start: 20081122
  2. NORVASC [Concomitant]
  3. AGGRENOX [Concomitant]
  4. FUROSEMIDE [Concomitant]
  5. PROTONIX [Concomitant]

REACTIONS (1)
  - Haemoglobin decreased [Unknown]
